FAERS Safety Report 6653239-9 (Version None)
Quarter: 2010Q1

REPORT INFORMATION
  Report Type: 
  Country: None (occurrence: None)
  Receive Date: 20100326
  Receipt Date: 20100320
  Transmission Date: 20100710
  Serious: Yes (Death, Hospitalization)
  Sender: FDA-Public Use
  Company Number: JP-BAYER-201010025BYL

PATIENT
  Age: 76 Year
  Sex: Male
  Weight: 48 kg

DRUGS (9)
  1. NEXAVAR [Suspect]
     Indication: HEPATIC NEOPLASM MALIGNANT
     Dosage: TOTAL DAILY DOSE: 400 MG  UNIT DOSE: 200 MG
     Route: 048
     Dates: start: 20091212, end: 20091229
  2. CANDESARTAN CILEXETIL [Concomitant]
     Route: 048
     Dates: end: 20100104
  3. NORVASC [Concomitant]
     Route: 048
     Dates: end: 20100104
  4. LANSOPRAZOLE [Concomitant]
     Route: 048
     Dates: end: 20100104
  5. MAGLAX [Concomitant]
     Route: 048
     Dates: end: 20100104
  6. LASIX [Concomitant]
     Route: 048
     Dates: end: 20100104
  7. ALDACTONE [Concomitant]
     Route: 048
     Dates: end: 20100104
  8. LIVACT [Concomitant]
     Route: 048
     Dates: end: 20100104
  9. VOLTAREN [Concomitant]
     Route: 054

REACTIONS (2)
  - HEPATIC FAILURE [None]
  - HYPERAMMONAEMIA [None]
